FAERS Safety Report 10174295 (Version 1)
Quarter: 2014Q2

REPORT INFORMATION
  Report Type: Spontaneous
  Country: PT (occurrence: PT)
  Receive Date: 20140515
  Receipt Date: 20140515
  Transmission Date: 20141212
  Serious: Yes (Death, Hospitalization, Other)
  Sender: FDA-Public Use
  Company Number: PT-B.I. PHARMACEUTICALS,INC./RIDGEFIELD-2014-BI-21210PO

PATIENT
  Age: 87 Year
  Sex: Female
  Weight: 60 kg

DRUGS (9)
  1. PRADAXA [Suspect]
     Indication: ATRIAL FIBRILLATION
     Dosage: 220 MG
     Route: 048
     Dates: start: 201402, end: 20140511
  2. RAMIPRIL [Concomitant]
     Route: 065
  3. LASIX [Concomitant]
     Route: 065
  4. CARVEDILOL [Concomitant]
     Dosage: 25 MG
     Route: 065
  5. NITROGLYCERIN [Concomitant]
     Route: 062
  6. ROSUVASTATIN [Concomitant]
     Route: 065
  7. ALLOPURINOL [Concomitant]
     Route: 065
  8. VILDAGLIPTIN [Concomitant]
     Route: 065
  9. LEVOTHYROXINE [Concomitant]
     Route: 065

REACTIONS (7)
  - Haemorrhage intracranial [Fatal]
  - Hydrocephalus [Fatal]
  - Altered state of consciousness [Fatal]
  - Periorbital oedema [Fatal]
  - Oedema peripheral [Fatal]
  - Apathy [Fatal]
  - Fatigue [Fatal]
